FAERS Safety Report 5373227-2 (Version None)
Quarter: 2007Q2

REPORT INFORMATION
  Report Type: 
  Country: None (occurrence: None)
  Receive Date: 20070628
  Receipt Date: 20070625
  Transmission Date: 20071010
  Serious: Yes (Death)
  Sender: FDA-Public Use
  Company Number: PHEH2007US09228

PATIENT
  Age: 82 Year
  Sex: Female
  Weight: 67.12 kg

DRUGS (1)
  1. GLEEVEC [Suspect]
     Indication: GASTROINTESTINAL STROMAL TUMOUR
     Dosage: 200 MG, QD
     Route: 048
     Dates: start: 20070613, end: 20070621

REACTIONS (2)
  - ATRIAL FIBRILLATION [None]
  - INTESTINAL ISCHAEMIA [None]
